FAERS Safety Report 4621248-7 (Version None)
Quarter: 2005Q1

REPORT INFORMATION
  Report Type: 
  Country: None (occurrence: None)
  Receive Date: 20050329
  Receipt Date: 20050317
  Transmission Date: 20050727
  Serious: Yes (Hospitalization, Other)
  Sender: FDA-Public Use
  Company Number: JP-JNJFOC-20050103312

PATIENT
  Sex: Male
  Weight: 73.3 kg

DRUGS (24)
  1. REMICADE [Suspect]
     Route: 042
  2. REMICADE [Suspect]
     Indication: RHEUMATOID ARTHRITIS
     Route: 042
  3. METHOTREXATE [Suspect]
     Route: 049
  4. METHOTREXATE [Suspect]
     Route: 049
  5. METHOTREXATE [Suspect]
     Route: 049
  6. METHOTREXATE [Suspect]
     Route: 049
  7. METHOTREXATE [Suspect]
     Indication: DRUG USE FOR UNKNOWN INDICATION
     Route: 049
  8. PREDONINE [Suspect]
     Route: 049
  9. PREDONINE [Suspect]
     Route: 049
  10. PREDONINE [Suspect]
     Route: 049
  11. PREDONINE [Suspect]
     Indication: RHEUMATOID ARTHRITIS
     Route: 049
  12. RHEUMATREX [Concomitant]
     Route: 049
  13. RHEUMATREX [Concomitant]
     Indication: RHEUMATOID ARTHRITIS
     Route: 049
  14. HAMAL [Concomitant]
     Route: 049
  15. MOBIC [Concomitant]
     Indication: RHEUMATOID ARTHRITIS
     Route: 049
  16. FOLIAMIN [Concomitant]
     Indication: RHEUMATOID ARTHRITIS
     Route: 049
  17. TAKEPRON [Concomitant]
     Route: 049
  18. ONEALFA [Concomitant]
     Route: 049
  19. GASTROM [Concomitant]
     Route: 049
  20. BENET [Concomitant]
     Route: 049
  21. RIMATIL [Concomitant]
     Indication: RHEUMATOID ARTHRITIS
     Route: 049
  22. RIDAURA [Concomitant]
     Indication: RHEUMATOID ARTHRITIS
     Route: 049
  23. LOBU [Concomitant]
     Indication: RHEUMATOID ARTHRITIS
     Route: 049
  24. MUCOSTA [Concomitant]
     Route: 049

REACTIONS (1)
  - PNEUMONITIS CRYPTOCOCCAL [None]
